FAERS Safety Report 6857285-1 (Version None)
Quarter: 2010Q3

REPORT INFORMATION
  Report Type: 
  Country: None (occurrence: None)
  Receive Date: 20100719
  Receipt Date: 20100708
  Transmission Date: 20110219
  Serious: Yes (Other)
  Sender: FDA-Public Use
  Company Number: JP-PFIZER INC-2010084952

PATIENT
  Age: 3 Year
  Sex: Male

DRUGS (1)
  1. ZITHROMAC [Suspect]
     Dosage: 150 MG, 1X/DAY
     Route: 048
     Dates: start: 20100707

REACTIONS (1)
  - FAECES DISCOLOURED [None]
